FAERS Safety Report 9400496 (Version 3)
Quarter: 2013Q4

REPORT INFORMATION
  Report Type: Spontaneous
  Country: US (occurrence: US)
  Receive Date: 20130715
  Receipt Date: 20131230
  Transmission Date: 20140711
  Serious: Yes (Death, Hospitalization)
  Sender: FDA-Public Use
  Company Number: US-GLAXOSMITHKLINE-A1032130A

PATIENT
  Age: 81 Year
  Sex: Female

DRUGS (1)
  1. AVANDIA [Suspect]
     Indication: DIABETES MELLITUS
     Dosage: 8MG UNKNOWN
     Route: 048
     Dates: start: 20050105, end: 20070424

REACTIONS (5)
  - Death [Fatal]
  - Myocardial infarction [Unknown]
  - Myocardial ischaemia [Unknown]
  - Coronary artery disease [Unknown]
  - Cardiac failure congestive [Unknown]
